FAERS Safety Report 7280228-6 (Version None)
Quarter: 2011Q1

REPORT INFORMATION
  Report Type: 
  Country: None (occurrence: None)
  Receive Date: 20110208
  Receipt Date: 20110127
  Transmission Date: 20110831
  Serious: Yes (Hospitalization)
  Sender: FDA-Public Use
  Company Number: US-SANOFI-AVENTIS-2011SA001267

PATIENT
  Age: 81 Year
  Sex: Male
  Weight: 112.27 kg

DRUGS (5)
  1. LOSARTAN POTASSIUM [Concomitant]
     Indication: HYPERTENSION
     Dates: start: 20100701, end: 20101220
  2. WARFARIN [Concomitant]
     Indication: ATRIAL FIBRILLATION
     Dosage: DAILY DOSE VARIES
  3. MULTAQ [Suspect]
     Indication: ATRIAL FIBRILLATION
     Route: 048
     Dates: start: 20100902, end: 20101220
  4. SIMVASTATIN [Suspect]
     Route: 065
     Dates: start: 20100501, end: 20101220
  5. DILTIAZEM [Concomitant]
     Indication: HYPERTENSION
     Route: 065
     Dates: start: 20100901

REACTIONS (7)
  - FATIGUE [None]
  - RHABDOMYOLYSIS [None]
  - DIZZINESS [None]
  - DYSPNOEA [None]
  - MUSCLE SPASMS [None]
  - MYOGLOBIN BLOOD INCREASED [None]
  - BLOOD CREATINE PHOSPHOKINASE INCREASED [None]
